FAERS Safety Report 12879107 (Version 3)
Quarter: 2017Q1

REPORT INFORMATION
  Report Type: Report from Study
  Country: US (occurrence: US)
  Receive Date: 20161024
  Receipt Date: 20170127
  Transmission Date: 20170428
  Serious: No
  Sender: FDA-Public Use
  Company Number: PHHY2016US099733

PATIENT
  Age: 63 Year
  Sex: Female

DRUGS (2)
  1. MULTI VITAMIN [Concomitant]
     Active Substance: VITAMINS
     Indication: PRODUCT USED FOR UNKNOWN INDICATION
     Dosage: UNK
     Route: 065
     Dates: start: 20140107
  2. GILENYA [Suspect]
     Active Substance: FINGOLIMOD HYDROCHLORIDE
     Indication: MULTIPLE SCLEROSIS
     Dosage: UNK, QD
     Route: 048

REACTIONS (10)
  - Fall [Recovered/Resolved]
  - Nerve compression [Unknown]
  - Sensory loss [Unknown]
  - Ataxia [Unknown]
  - Dizziness [Unknown]
  - Muscular weakness [Unknown]
  - Tremor [Recovered/Resolved]
  - Vertigo [Unknown]
  - Arthralgia [Unknown]
  - Carpal tunnel syndrome [Unknown]

NARRATIVE: CASE EVENT DATE: 20160208
